FAERS Safety Report 10337215 (Version 1)
Quarter: 2014Q3

REPORT INFORMATION
  Report Type: Spontaneous
  Country: US (occurrence: US)
  Receive Date: 20140723
  Receipt Date: 20140723
  Transmission Date: 20150326
  Serious: Yes (Other)
  Sender: FDA-Public Use
  Company Number: US-PFIZER INC-2014202747

PATIENT
  Age: 65 Year
  Sex: Male

DRUGS (1)
  1. LEVOXYL [Suspect]
     Active Substance: LEVOTHYROXINE SODIUM
     Indication: HYPOTHYROIDISM
     Dosage: 200 UG, 1X/DAY
     Route: 048

REACTIONS (2)
  - Diabetes mellitus [Unknown]
  - Atrial fibrillation [Unknown]
